FAERS Safety Report 14824018 (Version 6)
Quarter: 2019Q3

REPORT INFORMATION
  Report Type: Report from Study
  Country: US (occurrence: US)
  Receive Date: 20180428
  Receipt Date: 20190718
  Transmission Date: 20191004
  Serious: Yes (Other)
  Sender: FDA-Public Use
  Company Number: PHHY2017US087381

PATIENT
  Age: 36 Year
  Sex: Female

DRUGS (1)
  1. GILENYA [Suspect]
     Active Substance: FINGOLIMOD HYDROCHLORIDE
     Indication: MULTIPLE SCLEROSIS
     Dosage: UNK, QD
     Route: 048

REACTIONS (26)
  - Hypoaesthesia [Recovered/Resolved]
  - Memory impairment [Unknown]
  - Pain in extremity [Unknown]
  - Weight increased [Unknown]
  - Ear infection [Unknown]
  - Laryngitis [Unknown]
  - Melanocytic naevus [Unknown]
  - White blood cell count decreased [Unknown]
  - Alanine aminotransferase increased [Unknown]
  - Aspartate aminotransferase increased [Unknown]
  - Hypoaesthesia [Unknown]
  - Headache [Unknown]
  - Anxiety [Unknown]
  - Depression [Unknown]
  - Gait disturbance [Unknown]
  - Exposure to toxic agent [Unknown]
  - Vision blurred [Unknown]
  - Tanning [Unknown]
  - Blood potassium increased [Unknown]
  - Lymphocyte count decreased [Unknown]
  - Fatigue [Unknown]
  - Asthenia [Unknown]
  - Solar lentigo [Unknown]
  - Mood swings [Unknown]
  - Nasopharyngitis [Recovered/Resolved]
  - Dermatitis contact [Unknown]

NARRATIVE: CASE EVENT DATE: 20170314
